FAERS Safety Report 18903275 (Version 4)
Quarter: 2021Q3

REPORT INFORMATION
  Report Type: Spontaneous
  Country: SK (occurrence: SK)
  Receive Date: 20210216
  Receipt Date: 20210917
  Transmission Date: 20211014
  Serious: Yes (Death, Life-Threatening, Hospitalization, Disabling, Other)
  Sender: FDA-Public Use
  Company Number: SK-CELLTRION INC.-2019SK028745

PATIENT

DRUGS (45)
  1. PREDNISONE. [Suspect]
     Active Substance: PREDNISONE
     Indication: DIFFUSE LARGE B-CELL LYMPHOMA
     Dosage: UNK, CYCLIC (6 CYCLES)
     Route: 065
  2. DOXORUBICIN [Suspect]
     Active Substance: DOXORUBICIN
     Indication: DIFFUSE LARGE B-CELL LYMPHOMA
     Dosage: UNK, CYCLIC (6 CYCLES)
     Route: 065
  3. BENDAMUSTINE HYDROCHLORIDE. [Suspect]
     Active Substance: BENDAMUSTINE HYDROCHLORIDE
     Indication: DIFFUSE LARGE B-CELL LYMPHOMA
     Dosage: UNK UNK, CYCLIC (5 CYCLES)
     Route: 042
     Dates: start: 201602
  4. CAELYX [Suspect]
     Active Substance: DOXORUBICIN HYDROCHLORIDE
     Indication: DIFFUSE LARGE B-CELL LYMPHOMA
  5. NOREPINEPHRINE. [Concomitant]
     Active Substance: NOREPINEPHRINE
     Dosage: UNK
  6. MEROPENEM. [Concomitant]
     Active Substance: MEROPENEM
     Indication: INFECTION
     Dosage: UNK
     Dates: start: 20160814
  7. LOW MOLECULAR WEIGHT HEPARIN SODIUM [Concomitant]
     Active Substance: HEPARIN SODIUM
     Indication: PRODUCT USED FOR UNKNOWN INDICATION
     Dosage: UNK
     Dates: start: 20160814
  8. RITUXIMAB. [Suspect]
     Active Substance: RITUXIMAB
     Indication: LYMPHOPROLIFERATIVE DISORDER
     Dosage: 6 CYCLES
     Route: 065
  9. CYCLOPHOSPHAMIDE. [Suspect]
     Active Substance: CYCLOPHOSPHAMIDE
     Indication: DIFFUSE LARGE B-CELL LYMPHOMA
     Dosage: UNK, CYCLIC (6 CYCLES)
     Route: 065
  10. PREDNISONE. [Suspect]
     Active Substance: PREDNISONE
     Dosage: UNK, CYCLIC (3 CYCLES)
     Route: 065
     Dates: start: 20170329, end: 20170402
  11. NORADRENALINE [NOREPINEPHRINE] [Concomitant]
     Active Substance: NOREPINEPHRINE
     Dosage: UNK
  12. COLISTIN [Concomitant]
     Active Substance: COLISTIN
     Indication: INFECTION
     Dosage: UNK
     Dates: start: 20170419
  13. RITUXIMAB. [Suspect]
     Active Substance: RITUXIMAB
     Indication: DIFFUSE LARGE B-CELL LYMPHOMA
     Dosage: UNK (2ND LINE THERAPY, 5 CYCLES)
     Route: 065
     Dates: start: 201605, end: 201608
  14. CYCLOPHOSPHAMIDE. [Suspect]
     Active Substance: CYCLOPHOSPHAMIDE
     Indication: LYMPHOPROLIFERATIVE DISORDER
     Dosage: UNK UNK, CYCLIC (3 CYCLES)
     Route: 065
     Dates: start: 20170329, end: 20170402
  15. CYCLOPHOSPHAMIDE. [Suspect]
     Active Substance: CYCLOPHOSPHAMIDE
     Dosage: UNK UNK, CYCLIC
     Route: 065
     Dates: start: 20170419
  16. IMIPENEM [Concomitant]
     Active Substance: IMIPENEM
     Indication: ANTIBIOTIC THERAPY
     Dosage: UNK
     Dates: start: 20161010
  17. AMIKACIN. [Concomitant]
     Active Substance: AMIKACIN
     Dosage: UNK
     Dates: start: 20160814
  18. DEXAMETHASONE. [Concomitant]
     Active Substance: DEXAMETHASONE
     Indication: CHEMOTHERAPY
     Dosage: BSA 1M2
  19. PREDNISONE. [Suspect]
     Active Substance: PREDNISONE
     Dosage: UNK
     Route: 065
  20. DOXORUBICIN [Suspect]
     Active Substance: DOXORUBICIN
     Dosage: UNK UNK, CYCLIC
     Route: 065
     Dates: start: 20170419
  21. COLIMYCINE [Concomitant]
     Indication: INFECTION
     Dosage: UNK
     Dates: start: 20170419
  22. METRONIDAZOLE. [Concomitant]
     Active Substance: METRONIDAZOLE
     Indication: INFECTION
     Dosage: UNK
     Dates: start: 20160814
  23. LINEZOLID. [Concomitant]
     Active Substance: LINEZOLID
     Indication: ANTIBIOTIC THERAPY
  24. VANCOMYCINE [Concomitant]
     Active Substance: VANCOMYCIN
     Indication: INFECTION
  25. AMIKACIN. [Concomitant]
     Active Substance: AMIKACIN
     Indication: INFECTION
     Dosage: UNK
     Dates: start: 20161010
  26. VINCRISTINE [Suspect]
     Active Substance: VINCRISTINE
     Dosage: UNK UNK, CYCLIC
     Route: 065
     Dates: start: 20170419
  27. BENDAMUSTINE [Suspect]
     Active Substance: BENDAMUSTINE
     Indication: DIFFUSE LARGE B-CELL LYMPHOMA
     Dosage: UNK (2ND LINE THERAPY, 5 CYCLES)
     Route: 065
     Dates: start: 201605, end: 201608
  28. PREDNISON [Suspect]
     Active Substance: PREDNISONE
     Dosage: UNK, CYCLIC (3 CYCLES)
     Route: 065
     Dates: start: 20170329, end: 20170402
  29. GEMCITABINE. [Concomitant]
     Active Substance: GEMCITABINE
     Indication: CHEMOTHERAPY
     Dosage: BSA 1M2
     Dates: start: 20170425
  30. CLINDAMYCIN. [Concomitant]
     Active Substance: CLINDAMYCIN
     Indication: INFECTION
  31. ZARZIO [Concomitant]
     Active Substance: FILGRASTIM
     Indication: PRODUCT USED FOR UNKNOWN INDICATION
     Dosage: UNK
     Dates: start: 20160814
  32. CYCLOPHOSPHAMIDE. [Suspect]
     Active Substance: CYCLOPHOSPHAMIDE
     Dosage: UNK, CYCLIC
     Route: 065
  33. VINCRISTINE [Suspect]
     Active Substance: VINCRISTINE
     Dosage: UNK
     Route: 065
  34. DOXORUBICIN [Suspect]
     Active Substance: DOXORUBICIN
     Dosage: UNK UNK, CYCLIC (3 CYCLES)
     Route: 065
     Dates: start: 20170329, end: 20170402
  35. CAELYX [Suspect]
     Active Substance: DOXORUBICIN HYDROCHLORIDE
     Indication: LYMPHOPROLIFERATIVE DISORDER
     Dosage: 6 CYCLES
     Route: 065
  36. FLUCONAZOLE. [Concomitant]
     Active Substance: FLUCONAZOLE
     Indication: INFECTION
     Dosage: UNK
     Dates: start: 20160814
  37. CEFTAZIDIME. [Concomitant]
     Active Substance: CEFTAZIDIME
     Indication: ANTIBIOTIC THERAPY
     Dosage: UNK
     Dates: start: 20161010
  38. PREDNISONE. [Suspect]
     Active Substance: PREDNISONE
     Indication: LYMPHOPROLIFERATIVE DISORDER
     Dosage: UNK, CYCLIC
     Route: 065
     Dates: start: 20170419
  39. VINCRISTINE [Suspect]
     Active Substance: VINCRISTINE
     Indication: DIFFUSE LARGE B-CELL LYMPHOMA
     Dosage: UNK, CYCLIC (6 CYCLES)
     Route: 065
  40. BENDAMUSTINE [Suspect]
     Active Substance: BENDAMUSTINE
     Dosage: UNK, 6 CYCLES
     Route: 065
  41. PREDNISON [Suspect]
     Active Substance: PREDNISONE
     Dosage: UNK, CYCLIC
     Route: 065
     Dates: start: 20170419
  42. BISEPTOL [Concomitant]
     Active Substance: SULFAMETHOXAZOLE\TRIMETHOPRIM
     Indication: INFECTION
     Dosage: UNK
     Dates: start: 20170419
  43. VINCRISTINE [Suspect]
     Active Substance: VINCRISTINE
     Indication: LYMPHOPROLIFERATIVE DISORDER
     Dosage: UNK UNK, CYCLIC (3 CYCLES)
     Route: 065
     Dates: start: 20170329, end: 20170402
  44. PREDNISON [Suspect]
     Active Substance: PREDNISONE
     Indication: DIFFUSE LARGE B-CELL LYMPHOMA
     Dosage: UNK, CYCLIC (6 CYCLES)
     Route: 065
  45. TIENAM [Concomitant]
     Active Substance: CILASTATIN SODIUM\IMIPENEM
     Indication: INFECTION
     Dosage: SLIGHTLY REDUCED DOSE

REACTIONS (19)
  - Anaemia [Unknown]
  - Lymphoproliferative disorder [Fatal]
  - Condition aggravated [Fatal]
  - Debridement [Unknown]
  - Septic shock [Unknown]
  - Metabolic disorder [Unknown]
  - Muscle necrosis [Unknown]
  - Neutropenia [Fatal]
  - Pseudomonas infection [Fatal]
  - Neutrophil count decreased [Recovering/Resolving]
  - Off label use [Unknown]
  - Leukopenia [Fatal]
  - Enterococcal infection [Fatal]
  - Klebsiella infection [Fatal]
  - Sepsis [Recovered/Resolved with Sequelae]
  - Clostridial infection [Fatal]
  - Leg amputation [Unknown]
  - Febrile neutropenia [Unknown]
  - Product use in unapproved indication [Unknown]

NARRATIVE: CASE EVENT DATE: 201605
